FAERS Safety Report 11123874 (Version 1)
Quarter: 2015Q2

REPORT INFORMATION
  Report Type: Spontaneous
  Country: US (occurrence: US)
  Receive Date: 20150520
  Receipt Date: 20150520
  Transmission Date: 20150821
  Serious: No
  Sender: FDA-Public Use
  Company Number: US-TEVA-508979USA

PATIENT
  Sex: Female

DRUGS (1)
  1. MEXILETINE [Suspect]
     Active Substance: MEXILETINE
     Indication: ARRHYTHMIA
     Dates: start: 2014, end: 2014

REACTIONS (5)
  - Diarrhoea [Unknown]
  - Gait disturbance [Unknown]
  - Dizziness [Unknown]
  - Vomiting [Unknown]
  - Hyperhidrosis [Unknown]

NARRATIVE: CASE EVENT DATE: 2014
